FAERS Safety Report 6165594-7 (Version None)
Quarter: 2009Q2

REPORT INFORMATION
  Report Type: 
  Country: None (occurrence: None)
  Receive Date: 20090423
  Receipt Date: 20090409
  Transmission Date: 20091009
  Serious: Yes (Life-Threatening, Hospitalization)
  Sender: FDA-Public Use
  Company Number: FR-AVENTIS-200911490FR

PATIENT
  Age: 80 Year
  Sex: Female

DRUGS (10)
  1. PYOSTACINE [Suspect]
     Indication: HYPERTHERMIA
     Route: 048
     Dates: start: 20090212, end: 20090213
  2. LASILIX                            /00032601/ [Suspect]
     Indication: DRUG USE FOR UNKNOWN INDICATION
     Route: 048
     Dates: start: 20090128, end: 20090213
  3. CORTANCYL [Concomitant]
     Indication: ARTHRALGIA
     Route: 048
     Dates: start: 20090205, end: 20090213
  4. NORSET [Concomitant]
     Indication: DRUG USE FOR UNKNOWN INDICATION
  5. PRAZEPAM [Concomitant]
     Indication: DRUG USE FOR UNKNOWN INDICATION
  6. LEPTICUR [Concomitant]
     Indication: DRUG USE FOR UNKNOWN INDICATION
  7. CELECTOL [Concomitant]
     Indication: DRUG USE FOR UNKNOWN INDICATION
     Route: 048
     Dates: start: 20080401
  8. LAXATIVES [Concomitant]
     Indication: DRUG USE FOR UNKNOWN INDICATION
  9. PREVISCAN                          /00789001/ [Concomitant]
     Indication: DRUG USE FOR UNKNOWN INDICATION
     Route: 048
  10. DIANTALVIC [Concomitant]
     Indication: DRUG USE FOR UNKNOWN INDICATION
     Route: 048
     Dates: start: 20090126, end: 20090130

REACTIONS (3)
  - ERYTHEMA [None]
  - SKIN EXFOLIATION [None]
  - TOXIC EPIDERMAL NECROLYSIS [None]
